FAERS Safety Report 6531430-X (Version None)
Quarter: 2010Q1

REPORT INFORMATION
  Report Type: 
  Country: None (occurrence: None)
  Receive Date: 20100108
  Receipt Date: 20091125
  Transmission Date: 20100710
  Serious: No
  Sender: FDA-Public Use
  Company Number: A0832026A

PATIENT
  Age: 61 Year
  Sex: Female

DRUGS (9)
  1. TYKERB [Suspect]
     Indication: BREAST CANCER
     Dosage: 250MG PER DAY
     Route: 048
     Dates: start: 20091120, end: 20091121
  2. LISINOPRIL [Concomitant]
  3. XELODA [Concomitant]
  4. METOPROLOL TARTRATE [Concomitant]
  5. FERROUS SULFATE TAB [Concomitant]
  6. CALCIUM WITH VITAMIN D [Concomitant]
  7. COZAAR [Concomitant]
  8. KLOR-CON [Concomitant]
  9. HYDROCHLOROTHIAZIDE [Concomitant]

REACTIONS (3)
  - DIARRHOEA [None]
  - PAIN [None]
  - VOMITING [None]
